FAERS Safety Report 4406288-5 (Version None)
Quarter: 2004Q3

REPORT INFORMATION
  Report Type: 
  Country: None (occurrence: None)
  Receive Date: 20040723
  Receipt Date: 20030609
  Transmission Date: 20050211
  Serious: No
  Sender: FDA-Public Use
  Company Number: US-GLAXOSMITHKLINE-A0411420A

PATIENT
  Sex: Male

DRUGS (2)
  1. AVANDIA [Suspect]
     Dosage: 8MG PER DAY
     Route: 048
     Dates: start: 20021101
  2. UNSPECIFIED MEDICATION [Concomitant]

REACTIONS (2)
  - BLOOD GLUCOSE INCREASED [None]
  - NASOPHARYNGITIS [None]
